FAERS Safety Report 24667166 (Version 1)
Quarter: 2024Q4

REPORT INFORMATION
  Report Type: Spontaneous
  Country: GB (occurrence: GB)
  Receive Date: 20241126
  Receipt Date: 20241126
  Transmission Date: 20250114
  Serious: Yes (Death, Hospitalization, Other)
  Sender: ASTELLAS
  Company Number: GB-ASTELLAS-2024-AER-020489

PATIENT
  Age: 30 Year
  Sex: Male

DRUGS (7)
  1. TACROLIMUS [Suspect]
     Active Substance: TACROLIMUS
     Indication: Prophylaxis against graft versus host disease
     Route: 065
  2. TACROLIMUS [Suspect]
     Active Substance: TACROLIMUS
     Indication: Graft versus host disease in lung
     Dosage: SEVERE LUNG GVHD ON DAY + 240
     Route: 065
  3. THIOTEPA [Concomitant]
     Active Substance: THIOTEPA
     Indication: Allogenic stem cell transplantation
     Route: 065
  4. BUSULFAN [Concomitant]
     Active Substance: BUSULFAN
     Indication: Allogenic stem cell transplantation
     Route: 065
  5. FLUDARABINE [Concomitant]
     Active Substance: FLUDARABINE PHOSPHATE
     Indication: Allogenic stem cell transplantation
     Dosage: 150 MG/M2
     Route: 065
  6. micofenolate [Concomitant]
     Indication: Prophylaxis against graft versus host disease
     Route: 065
  7. CYCLOPHOSPHAMIDE [Concomitant]
     Active Substance: CYCLOPHOSPHAMIDE
     Indication: Prophylaxis against graft versus host disease
     Route: 065

REACTIONS (5)
  - Respiratory failure [Fatal]
  - Condition aggravated [Fatal]
  - Aspergillus infection [Fatal]
  - Penicillium infection [Fatal]
  - Off label use [Unknown]

NARRATIVE: CASE EVENT DATE: 20230101
